FAERS Safety Report 7815411-1 (Version None)
Quarter: 2011Q4

REPORT INFORMATION
  Report Type: 
  Country: None (occurrence: None)
  Receive Date: 20111014
  Receipt Date: 20111007
  Transmission Date: 20120403
  Serious: Yes (Hospitalization)
  Sender: FDA-Public Use
  Company Number: US-B.I. PHARMACEUTICALS,INC./RIDGEFIELD-2011-BP-16845BP

PATIENT
  Age: 84 Year
  Sex: Male
  Weight: 87.3 kg

DRUGS (11)
  1. PRAVASTATIN [Concomitant]
     Indication: HYPERLIPIDAEMIA
     Dosage: 40 MG
     Route: 048
     Dates: start: 20110629
  2. BETHANECHOL [Concomitant]
     Dosage: 50 MG
     Route: 048
     Dates: start: 20070828
  3. ASPIRIN [Concomitant]
     Dosage: 81 MG
     Dates: start: 20010801
  4. METOPROLOL TARTRATE [Concomitant]
     Dosage: 100 MG
     Dates: start: 20110629
  5. PRADAXA [Suspect]
     Indication: ATRIAL FLUTTER
     Dosage: 300 MG
     Route: 048
     Dates: start: 20110411
  6. PRADAXA [Suspect]
     Indication: ATRIAL FIBRILLATION
  7. LISINOPRIL [Concomitant]
     Indication: HYPERTENSION
     Dosage: 10 MG
     Route: 048
     Dates: start: 20040417
  8. SIMVASTATIN [Concomitant]
     Indication: HYPERLIPIDAEMIA
     Dosage: 10 MG
     Route: 048
     Dates: start: 20020924, end: 20110623
  9. AMIODARONE HCL [Concomitant]
     Dosage: 200 MG
     Dates: start: 20110629
  10. TERAZOSIN HCL [Concomitant]
     Indication: HYPERTENSION
     Dosage: 5 MG
     Route: 048
     Dates: start: 20051201
  11. FUROSEMIDE [Concomitant]
     Dosage: 40 MG
     Dates: start: 20110629

REACTIONS (3)
  - THROMBOCYTOPENIA [None]
  - PLATELET COUNT DECREASED [None]
  - CARDIAC FAILURE CONGESTIVE [None]
